FAERS Safety Report 11880100 (Version 1)
Quarter: 2015Q4

REPORT INFORMATION
  Report Type: Spontaneous
  Country: TW (occurrence: TW)
  Receive Date: 20151230
  Receipt Date: 20151230
  Transmission Date: 20160305
  Serious: Yes (Other)
  Sender: FDA-Public Use
  Company Number: TW-FRESENIUS KABI-FK201506908

PATIENT
  Age: 42 Year

DRUGS (4)
  1. MITOMYCIN C [Concomitant]
     Active Substance: MITOMYCIN
  2. CISPLATIN (MANUFACTURER UNKNOWN) [Suspect]
     Active Substance: CISPLATIN
     Indication: METASTASES TO BONE
  3. CISPLATIN (MANUFACTURER UNKNOWN) [Suspect]
     Active Substance: CISPLATIN
     Indication: NASOPHARYNGEAL CANCER
     Route: 065
  4. TEGAFUR [Concomitant]
     Active Substance: TEGAFUR

REACTIONS (1)
  - Hypersensitivity [Unknown]
